FAERS Safety Report 7110746-2 (Version None)
Quarter: 2010Q4

REPORT INFORMATION
  Report Type: 
  Country: None (occurrence: None)
  Receive Date: 20101118
  Receipt Date: 20101109
  Transmission Date: 20110411
  Serious: Yes (Hospitalization)
  Sender: FDA-Public Use
  Company Number: B0673799A

PATIENT
  Age: 9 Year
  Sex: Female
  Weight: 34.8 kg

DRUGS (18)
  1. ONDANSETRON [Suspect]
     Route: 042
     Dates: start: 20100217, end: 20100217
  2. ONDANSETRON [Suspect]
     Indication: NAUSEA
     Route: 048
     Dates: start: 20100220, end: 20100222
  3. APREPITANT [Suspect]
     Indication: PROPHYLAXIS
     Route: 048
     Dates: start: 20100217, end: 20100217
  4. COSMEGEN [Suspect]
     Dosage: 1.9MG SINGLE DOSE
     Route: 042
     Dates: start: 20100217, end: 20100217
  5. DOXORUBICIN HCL [Suspect]
     Dosage: 38MG PER DAY
     Route: 042
     Dates: start: 20100217, end: 20100218
  6. VINCRISTINE [Suspect]
     Dosage: 1.9MG SINGLE DOSE
     Route: 042
     Dates: start: 20100217, end: 20100217
  7. SULFAMETHOXAZOLE AND TRIMETHOPRIM [Concomitant]
     Route: 065
     Dates: start: 20100220, end: 20100221
  8. IFOSFAMIDE [Concomitant]
     Dosage: 3800MG PER DAY
     Route: 042
     Dates: start: 20100217, end: 20100218
  9. FILGRASTIM [Concomitant]
     Dates: start: 20100226, end: 20100302
  10. LANSOPRAZOLE [Concomitant]
     Dates: start: 20100217, end: 20100219
  11. LACTITOL [Concomitant]
     Dates: start: 20100217, end: 20100218
  12. FLUCONAZOLE [Concomitant]
     Dates: start: 20100226, end: 20100302
  13. DEXAMETHASONE [Concomitant]
     Indication: ANTIEMETIC SUPPORTIVE CARE
     Dosage: 30MG THREE TIMES PER DAY
     Dates: start: 20100217, end: 20100219
  14. SULFAMETHOXAZOLE AND TRIMETHOPRIM [Concomitant]
     Dates: start: 20100213, end: 20100214
  15. OMEPRAZOLE [Concomitant]
     Dates: start: 20100211, end: 20100213
  16. PENICILLIN G SODIUM [Concomitant]
     Dates: start: 20100226, end: 20100303
  17. RANITIDINE [Concomitant]
     Dates: start: 20100211, end: 20100212
  18. GENTAMICIN SULFATE [Concomitant]
     Dates: start: 20100226, end: 20100303

REACTIONS (1)
  - FEBRILE NEUTROPENIA [None]
